FAERS Safety Report 8459378-4 (Version None)
Quarter: 2012Q2

REPORT INFORMATION
  Report Type: 
  Country: None (occurrence: None)
  Receive Date: 20120622
  Receipt Date: 20120614
  Transmission Date: 20120825
  Serious: Yes (Hospitalization)
  Sender: FDA-Public Use
  Company Number: US-JNJFOC-20120520040

PATIENT
  Sex: Female
  Weight: 80.29 kg

DRUGS (6)
  1. COUMADIN [Concomitant]
     Indication: ATRIAL FLUTTER
     Dates: start: 20100901, end: 20120501
  2. SIMVASTATIN [Concomitant]
  3. LEVOTHYROXINE [Concomitant]
  4. LOPRESSOR [Concomitant]
  5. XARELTO [Suspect]
     Indication: ATRIAL FLUTTER
     Route: 048
     Dates: start: 20120517, end: 20120525
  6. XARELTO [Suspect]
     Indication: ATRIAL FIBRILLATION
     Route: 048
     Dates: start: 20120517, end: 20120525

REACTIONS (4)
  - PETECHIAE [None]
  - HYPERSENSITIVITY [None]
  - OEDEMA PERIPHERAL [None]
  - BLISTER [None]
